FAERS Safety Report 5046895-2 (Version None)
Quarter: 2006Q2

REPORT INFORMATION
  Report Type: 
  Country: None (occurrence: None)
  Receive Date: 20060628
  Receipt Date: 20060623
  Transmission Date: 20061013
  Serious: Yes (Hospitalization, Other)
  Sender: FDA-Public Use
  Company Number: HQWYE492824JAN06

PATIENT
  Age: 34 Year
  Sex: Male

DRUGS (3)
  1. VENLAFAXINE HCL EXTENDED-RELEASE [Suspect]
     Dosage: 300 MG 1X PER 1 DAY
     Dates: end: 20051108
  2. LITHIUM CARBONATE [Concomitant]
  3. PANTOLOC (PANTOPRAZOLE) [Concomitant]

REACTIONS (2)
  - APNOEA [None]
  - CONVULSION [None]
